FAERS Safety Report 15542792 (Version 10)
Quarter: 2019Q2

REPORT INFORMATION
  Report Type: Report from Study
  Country: IL (occurrence: IL)
  Receive Date: 20181023
  Receipt Date: 20190410
  Transmission Date: 20190711
  Serious: Yes (Hospitalization)
  Sender: FDA-Public Use
  Company Number: IL-IPSEN BIOPHARMACEUTICALS, INC.-2018-15944

PATIENT
  Age: 81 Year
  Sex: Female
  Weight: 52 kg

DRUGS (5)
  1. SOMATULINE LP [Suspect]
     Active Substance: LANREOTIDE ACETATE
     Route: 058
     Dates: start: 20190107, end: 201901
  2. SOMATULINE LP [Suspect]
     Active Substance: LANREOTIDE ACETATE
     Indication: NEUROENDOCRINE TUMOUR
     Route: 065
     Dates: start: 20180610
  3. SOMATOSTATIN [Concomitant]
     Active Substance: SOMATOSTATIN
  4. CLEXANE [Concomitant]
     Active Substance: ENOXAPARIN SODIUM
  5. COUMADIN [Suspect]
     Active Substance: WARFARIN SODIUM
     Indication: ANTIPHOSPHOLIPID SYNDROME
     Dosage: DOSAGE DEPENDS ON THE IMR VALUES, WEEKLY AVERAGE IS 24 MG TO 30 MG.
     Dates: start: 2010

REACTIONS (9)
  - Abdominal pain [Recovering/Resolving]
  - Frequent bowel movements [Not Recovered/Not Resolved]
  - International normalised ratio fluctuation [Recovered/Resolved]
  - Headache [Recovered/Resolved]
  - Off label use [Unknown]
  - Product dose omission [Unknown]
  - Quality of life decreased [Unknown]
  - Alopecia [Recovered/Resolved]
  - Diarrhoea [Recovering/Resolving]

NARRATIVE: CASE EVENT DATE: 2018
